FAERS Safety Report 24768282 (Version 1)
Quarter: 2024Q4

REPORT INFORMATION
  Report Type: Spontaneous
  Country: FR (occurrence: FR)
  Receive Date: 20241223
  Receipt Date: 20241223
  Transmission Date: 20250114
  Serious: Yes (Hospitalization)
  Sender: NOVARTIS
  Company Number: FR-002147023-NVSC2024FR242466

PATIENT
  Age: 82 Year
  Sex: Male

DRUGS (1)
  1. ENTRESTO [Suspect]
     Active Substance: SACUBITRIL\VALSARTAN
     Indication: Cardiac failure
     Dosage: 1 DOSAGE FORM, BID (97MG/10 3MG) (1 TABLET)
     Route: 065

REACTIONS (3)
  - Impaired gastric emptying [Unknown]
  - Wrong technique in product usage process [Unknown]
  - Off label use [Unknown]
